FAERS Safety Report 4405187-2 (Version None)
Quarter: 2004Q3

REPORT INFORMATION
  Report Type: 
  Country: None (occurrence: None)
  Receive Date: 20040722
  Receipt Date: 20040722
  Transmission Date: 20050211
  Serious: Yes (Hospitalization)
  Sender: FDA-Public Use
  Company Number: None

PATIENT
  Age: 53 Year
  Sex: Female
  Weight: 113.3993 kg

DRUGS (4)
  1. NUBAIN [Suspect]
     Indication: SEDATION
     Dosage: 5 MG - 5 MGM 2 MIN APART TOTAL 10 MG IV
     Route: 042
  2. DROPERIDOL [Suspect]
     Indication: SEDATION
     Dosage: 1.25 MG X 4 OVER 6 MIN TOTAL 5 MGM IV
     Route: 042
  3. VERSED [Concomitant]
  4. ROMAZICON [Concomitant]

REACTIONS (2)
  - DYSKINESIA [None]
  - RESTLESSNESS [None]
